FAERS Safety Report 17647402 (Version 4)
Quarter: 2020Q4

REPORT INFORMATION
  Report Type: Spontaneous
  Country: US (occurrence: US)
  Receive Date: 20200408
  Receipt Date: 20201106
  Transmission Date: 20210113
  Serious: Yes (Other)
  Sender: FDA-Public Use
  Company Number: US-PFIZER INC-2019250433

PATIENT
  Age: 40 Year
  Sex: Male

DRUGS (3)
  1. DILANTIN [Suspect]
     Active Substance: PHENYTOIN
     Dosage: 300 MG, 2X/DAY (3QAM AND 3 QPM)
     Route: 048
     Dates: start: 20191114
  2. DILANTIN [Suspect]
     Active Substance: PHENYTOIN
     Dosage: 300 MG, 2X/DAY (3QAM AND 3 QPM)
     Route: 048
     Dates: start: 20200311
  3. DILANTIN [Suspect]
     Active Substance: PHENYTOIN
     Dosage: 300 MG, 2X/DAY (3QAM AND 3 QPM)
     Route: 048
     Dates: end: 202009

REACTIONS (1)
  - Seizure [Unknown]
